FAERS Safety Report 5315185-2 (Version None)
Quarter: 2007Q2

REPORT INFORMATION
  Report Type: 
  Country: None (occurrence: None)
  Receive Date: 20070427
  Receipt Date: 20070419
  Transmission Date: 20071010
  Serious: Yes (Death)
  Sender: FDA-Public Use
  Company Number: 430001E07DEU

PATIENT
  Age: 65 Year
  Sex: Male

DRUGS (3)
  1. NOVANTRONE [Suspect]
     Dosage: 14 MG
     Dates: start: 20050614, end: 20050616
  2. CYTARABINE [Suspect]
     Dosage: 190 MG
     Dates: start: 20050614, end: 20050620
  3. ETOPOSIDE [Suspect]
     Dosage: 190 MG
     Dates: start: 20050614, end: 20050616

REACTIONS (1)
  - FUNGAL INFECTION [None]
